FAERS Safety Report 20983244 (Version 1)
Quarter: 2022Q2

REPORT INFORMATION
  Report Type: Spontaneous
  Country: MY (occurrence: MY)
  Receive Date: 20220620
  Receipt Date: 20220620
  Transmission Date: 20220721
  Serious: No
  Sender: FDA-Public Use
  Company Number: MY-ELI_LILLY_AND_COMPANY-MY202206007758

PATIENT
  Age: 58 Year
  Sex: Male

DRUGS (2)
  1. CIALIS [Suspect]
     Active Substance: TADALAFIL
     Indication: Erectile dysfunction
     Dosage: 5 MG, DAILY
     Route: 065
  2. CIALIS [Suspect]
     Active Substance: TADALAFIL
     Indication: Benign prostatic hyperplasia

REACTIONS (2)
  - Dizziness [Unknown]
  - Ocular hyperaemia [Unknown]
